FAERS Safety Report 14269666 (Version 3)
Quarter: 2018Q4

REPORT INFORMATION
  Report Type: Spontaneous
  Country: US (occurrence: US)
  Receive Date: 20171211
  Receipt Date: 20181213
  Transmission Date: 20190204
  Serious: Yes (Hospitalization, Other)
  Sender: FDA-Public Use
  Company Number: US-OTSUKA-2016_030432

PATIENT
  Age: 45 Year
  Sex: Male

DRUGS (8)
  1. ABILIFY [Suspect]
     Active Substance: ARIPIPRAZOLE
     Indication: MAJOR DEPRESSION
     Dosage: 10 MG, QD
     Route: 065
  2. NORTRIPTYLINE [Concomitant]
     Active Substance: NORTRIPTYLINE
     Indication: PRODUCT USED FOR UNKNOWN INDICATION
     Dosage: 75 MG, QD
     Route: 065
  3. GEODON [Concomitant]
     Active Substance: ZIPRASIDONE HYDROCHLORIDE\ZIPRASIDONE MESYLATE
     Indication: PRODUCT USED FOR UNKNOWN INDICATION
     Dosage: 80 MG, UNK
     Route: 065
  4. ABILIFY [Suspect]
     Active Substance: ARIPIPRAZOLE
     Indication: SCHIZOPHRENIA
     Dosage: 5 MG, QD BEDTIME
     Route: 065
     Dates: start: 20051201
  5. ABILIFY [Suspect]
     Active Substance: ARIPIPRAZOLE
     Dosage: 20 MG, QD
     Route: 065
  6. ABILIFY [Suspect]
     Active Substance: ARIPIPRAZOLE
     Dosage: 30 MG, QD
     Route: 065
     Dates: end: 20140707
  7. CLONAZEPAM. [Concomitant]
     Active Substance: CLONAZEPAM
     Indication: PRODUCT USED FOR UNKNOWN INDICATION
     Dosage: 0.5 MG, TID
     Route: 065
  8. RISPERDAL [Concomitant]
     Active Substance: RISPERIDONE
     Indication: PRODUCT USED FOR UNKNOWN INDICATION
     Dosage: 3 MG, BEDTIME
     Route: 065

REACTIONS (14)
  - Injury [Unknown]
  - Suicidal ideation [Recovered/Resolved]
  - Eating disorder [Recovered/Resolved]
  - Condition aggravated [Recovered/Resolved]
  - Suicide attempt [Recovered/Resolved]
  - Obsessive-compulsive disorder [Recovered/Resolved]
  - Pulmonary embolism [Unknown]
  - Emotional distress [Unknown]
  - Gambling disorder [Recovered/Resolved]
  - Neuropsychiatric symptoms [Unknown]
  - Weight increased [Unknown]
  - Economic problem [Unknown]
  - Bankruptcy [Unknown]
  - Mental disorder [Unknown]

NARRATIVE: CASE EVENT DATE: 200609
